FAERS Safety Report 8472013-4 (Version None)
Quarter: 2012Q2

REPORT INFORMATION
  Report Type: 
  Country: None (occurrence: None)
  Receive Date: 20120627
  Receipt Date: 20120613
  Transmission Date: 20120825
  Serious: Yes (Hospitalization, Other)
  Sender: FDA-Public Use
  Company Number: DE-FRI-1000036606

PATIENT
  Sex: Female

DRUGS (6)
  1. OMEPRAZOLE [Interacting]
     Dosage: 40 MG
     Route: 048
     Dates: end: 20120308
  2. RAMIPRIL [Interacting]
     Dosage: 2.5 MG
     Route: 048
  3. CITALOPRAM HYDROBROMIDE [Suspect]
     Dosage: 20 MG
     Route: 048
     Dates: end: 20120308
  4. LEVOTHYROXINE SODIUM [Concomitant]
     Dosage: 75 MICROGRAMS
     Route: 048
  5. METOPROLOL TARTRATE [Interacting]
     Dosage: 50 MG
     Route: 048
     Dates: end: 20120308
  6. SIMVASTATIN [Concomitant]
     Dosage: 20 MG
     Route: 048

REACTIONS (2)
  - HYPONATRAEMIA [None]
  - POTENTIATING DRUG INTERACTION [None]
